FAERS Safety Report 10401824 (Version 2)
Quarter: 2016Q2

REPORT INFORMATION
  Report Type: Spontaneous
  Country: US (occurrence: US)
  Receive Date: 20130815
  Receipt Date: 20160412
  Transmission Date: 20160815
  Serious: Yes (Other)
  Sender: FDA-Public Use
  Company Number: ADR-2012-01881

PATIENT
  Age: 50 Year
  Sex: Female

DRUGS (6)
  1. PERCOCET [Suspect]
     Active Substance: ACETAMINOPHEN\OXYCODONE HYDROCHLORIDE
     Route: 048
  2. FENTANYL INTRATHECAL [Suspect]
     Active Substance: FENTANYL
     Route: 037
  3. BUPVACAINE INTRATHECAL [Suspect]
     Active Substance: BUPIVACAINE
     Route: 037
  4. BACLOFEN INTRATHECAL [Suspect]
     Active Substance: BACLOFEN
     Route: 037
  5. DILAUDID [Suspect]
     Active Substance: HYDROMORPHONE HYDROCHLORIDE
     Route: 037
  6. MORPHINE INTRATHECAL [Suspect]
     Active Substance: MORPHINE
     Route: 037

REACTIONS (4)
  - Nausea [Unknown]
  - Performance status decreased [Unknown]
  - Breakthrough pain [Unknown]
  - No therapeutic response [Unknown]
